FAERS Safety Report 12497201 (Version 5)
Quarter: 2016Q3

REPORT INFORMATION
  Report Type: Report from Study
  Country: IE (occurrence: IE)
  Receive Date: 20160624
  Receipt Date: 20160817
  Transmission Date: 20161109
  Serious: Yes (Hospitalization)
  Sender: FDA-Public Use
  Company Number: IE-ABBVIE-16P-229-1620642-00

PATIENT
  Age: 63 Year
  Sex: Female

DRUGS (3)
  1. DUODOPA [Suspect]
     Active Substance: CARBIDOPA\LEVODOPA
     Indication: PARKINSON^S DISEASE
     Dosage: CASSETTE; CONTINOUS
     Route: 050
     Dates: start: 20120827, end: 20120904
  2. DUODOPA [Suspect]
     Active Substance: CARBIDOPA\LEVODOPA
     Dosage: CONTINUOUS DOSE: 1.6ML/HR
     Route: 050
     Dates: start: 20160620
  3. DUODOPA [Suspect]
     Active Substance: CARBIDOPA\LEVODOPA
     Dosage: CONTINUOUS DOSE: 1.8ML/HR
     Route: 050
     Dates: start: 20120904, end: 20160620

REACTIONS (7)
  - Fall [Recovered/Resolved]
  - Dyskinesia [Recovered/Resolved]
  - Staphylococcal infection [Recovered/Resolved]
  - Scratch [Unknown]
  - Stoma site discharge [Recovered/Resolved]
  - Stoma site extravasation [Not Recovered/Not Resolved]
  - Stoma site infection [Recovered/Resolved]

NARRATIVE: CASE EVENT DATE: 20160425
